FAERS Safety Report 12356791 (Version 2)
Quarter: 2016Q2

REPORT INFORMATION
  Report Type: Spontaneous
  Country: US (occurrence: US)
  Receive Date: 20160511
  Receipt Date: 20160530
  Transmission Date: 20160815
  Serious: No
  Sender: FDA-Public Use
  Company Number: US-PFIZER INC-2016219220

PATIENT
  Age: 52 Year
  Sex: Male
  Weight: 77 kg

DRUGS (4)
  1. LYRICA [Suspect]
     Active Substance: PREGABALIN
     Dosage: 50 MG, SOMETIMES TAKE 1 A DAY, SOMETIMES TAKE 2 A DAY
     Route: 048
     Dates: start: 201504
  2. NUVIGIL [Suspect]
     Active Substance: ARMODAFINIL
     Indication: SOMNOLENCE
     Dosage: 150 MG, ONE TO TWO TIMES A DAY
     Dates: start: 2012
  3. LYRICA [Suspect]
     Active Substance: PREGABALIN
     Indication: SLEEP APNOEA SYNDROME
     Dosage: 50 MG, SOMETIMES TAKE 1 A DAY, SOMETIMES TAKE 2 A DAY
     Route: 048
     Dates: start: 2012, end: 201501
  4. NAPROXEN SODIUM. [Concomitant]
     Active Substance: NAPROXEN SODIUM
     Dosage: UNK

REACTIONS (13)
  - Therapeutic response unexpected [Not Recovered/Not Resolved]
  - Skin fissures [Unknown]
  - Drug screen positive [Unknown]
  - Skin disorder [Not Recovered/Not Resolved]
  - Nail disorder [Not Recovered/Not Resolved]
  - Pre-existing condition improved [Unknown]
  - Intentional product misuse [Not Recovered/Not Resolved]
  - Therapeutic response unexpected [Unknown]
  - Product use issue [Not Recovered/Not Resolved]
  - Condition aggravated [Not Recovered/Not Resolved]
  - Energy increased [Not Recovered/Not Resolved]
  - Ingrowing nail [Not Recovered/Not Resolved]
  - Fatigue [Not Recovered/Not Resolved]

NARRATIVE: CASE EVENT DATE: 2012
